FAERS Safety Report 4970297-8 (Version None)
Quarter: 2006Q2

REPORT INFORMATION
  Report Type: 
  Country: None (occurrence: None)
  Receive Date: 20060403
  Receipt Date: 20060317
  Transmission Date: 20061013
  Serious: Yes (Life-Threatening)
  Sender: FDA-Public Use
  Company Number: 200510680BYL

PATIENT
  Age: 11 Month
  Sex: Female
  Weight: 9.1 kg

DRUGS (2)
  1. GAMIMUNE N 5% [Suspect]
     Indication: KAWASAKI'S DISEASE
     Dosage: 17.745 G, TOTAL DAILY, INTRAVENOUS DRIP
     Route: 041
     Dates: start: 20051213
  2. GAMIMUNE N 5% [Suspect]

REACTIONS (2)
  - ANAPHYLACTIC REACTION [None]
  - BLOOD PRESSURE DECREASED [None]
